FAERS Safety Report 6866396-6 (Version None)
Quarter: 2010Q3

REPORT INFORMATION
  Report Type: 
  Country: None (occurrence: None)
  Receive Date: 20100722
  Receipt Date: 20100715
  Transmission Date: 20110219
  Serious: Yes (Other)
  Sender: FDA-Public Use
  Company Number: CA-KINGPHARMUSA00001-K201000799

PATIENT
  Sex: Male

DRUGS (1)
  1. EPIPEN JR. [Suspect]
     Dosage: 0.15 MG, SINGLE

REACTIONS (2)
  - ACCIDENTAL EXPOSURE [None]
  - INJECTION SITE NERVE DAMAGE [None]
